FAERS Safety Report 5914896-5 (Version None)
Quarter: 2008Q4

REPORT INFORMATION
  Report Type: 
  Country: None (occurrence: None)
  Receive Date: 20081010
  Receipt Date: 20081003
  Transmission Date: 20090506
  Serious: Yes (Other)
  Sender: FDA-Public Use
  Company Number: PHEH2008US08082

PATIENT
  Sex: Female

DRUGS (4)
  1. FEMARA [Suspect]
     Indication: BREAST CANCER
     Dosage: 2.5 MG, QD
     Route: 048
     Dates: start: 20080804, end: 20080902
  2. ASPIRIN [Concomitant]
     Dosage: 81 MG, QD
     Route: 048
  3. OSCAL 500-D [Concomitant]
     Dosage: 1 UNK, QD
     Route: 048
  4. CENTRUM SILVER [Concomitant]

REACTIONS (6)
  - CONFUSIONAL STATE [None]
  - GLOBAL AMNESIA [None]
  - HEADACHE [None]
  - MEMORY IMPAIRMENT [None]
  - NAUSEA [None]
  - RETCHING [None]
